FAERS Safety Report 24350489 (Version 1)
Quarter: 2024Q3

REPORT INFORMATION
  Report Type: Spontaneous
  Country: CN (occurrence: CN)
  Receive Date: 20240923
  Receipt Date: 20240923
  Transmission Date: 20241017
  Serious: Yes (Hospitalization)
  Sender: MYLAN
  Company Number: CN-MYLANLABS-2024M1085400

PATIENT
  Age: 69 Year
  Sex: Male
  Weight: 85.5 kg

DRUGS (5)
  1. LYRICA [Suspect]
     Active Substance: PREGABALIN
     Indication: Diabetic neuropathy
     Dosage: 1 DOSAGE FORM, BID (ONCE EVERY MORNING AND EVENING WITHIN 1 HOUR AFTER THE START OF MEALS)
     Route: 048
     Dates: start: 20240527, end: 20240815
  2. METOPROLOL SUCCINATE [Concomitant]
     Active Substance: METOPROLOL SUCCINATE
     Indication: Hypertension
     Dosage: 23.75 MILLIGRAM, BID
     Route: 048
     Dates: start: 2020
  3. ACIPIMOX [Concomitant]
     Active Substance: ACIPIMOX
     Indication: Hyperlipidaemia
     Dosage: (0.25) BID
     Route: 048
     Dates: start: 2021
  4. LORATADINE [Concomitant]
     Active Substance: LORATADINE
     Indication: Seasonal allergy
     Dosage: UNK (INTERMITTENT)
     Route: 048
     Dates: start: 2021
  5. METFORMIN [Concomitant]
     Active Substance: METFORMIN HYDROCHLORIDE
     Indication: Type 2 diabetes mellitus
     Dosage: 0.5 GRAM, BID
     Route: 048
     Dates: start: 2020

REACTIONS (2)
  - Abdominal pain [Recovering/Resolving]
  - Hepatic function abnormal [Not Recovered/Not Resolved]

NARRATIVE: CASE EVENT DATE: 20240821
